FAERS Safety Report 9130283 (Version 1)
Quarter: 2013Q1

REPORT INFORMATION
  Report Type: Spontaneous
  Country: US (occurrence: US)
  Receive Date: 20130228
  Receipt Date: 20130228
  Transmission Date: 20140127
  Serious: Yes (Hospitalization, Other)
  Sender: FDA-Public Use
  Company Number: US-009507513-1302USA012432

PATIENT
  Age: 19 Year
  Sex: Male

DRUGS (12)
  1. MONTELUKAST SODIUM [Suspect]
  2. VENLAFAXINE HYDROCHLORIDE [Concomitant]
  3. LANSOPRAZOLE [Concomitant]
  4. OMEPRAZOLE [Concomitant]
  5. CROMOLYN SODIUM [Concomitant]
  6. PAROXETINE [Concomitant]
  7. LITHIUM CARBONATE [Concomitant]
  8. DIAZEPAM [Concomitant]
  9. PHENOBARBITAL [Concomitant]
  10. BUDESONIDE [Concomitant]
  11. SALMETEROL [Concomitant]
  12. ALBUTEROL [Concomitant]

REACTIONS (6)
  - Serotonin syndrome [Unknown]
  - Speech disorder [Unknown]
  - Road traffic accident [Unknown]
  - Grand mal convulsion [Unknown]
  - Gait disturbance [Unknown]
  - Drug interaction [Unknown]
